FAERS Safety Report 9848388 (Version 1)
Quarter: 2013Q4

REPORT INFORMATION
  Report Type: Spontaneous
  Country: US (occurrence: None)
  Receive Date: 20131224
  Receipt Date: 20131224
  Transmission Date: 20140711
  Serious: Yes (Other)
  Sender: FDA-Public Use
  Company Number: PHEH2012US025488

PATIENT
  Sex: Male

DRUGS (2)
  1. EXJADE [Suspect]
     Indication: HAEMOCHROMATOSIS
     Route: 048
     Dates: start: 201208
  2. DECAVEN (DEXAMETHASONE SODIUM PHOSPHATE, NEOMYCIN SULFATE) [Concomitant]

REACTIONS (5)
  - Platelet count decreased [None]
  - Myelodysplastic syndrome [None]
  - Disease progression [None]
  - Aphasia [None]
  - Blood count abnormal [None]
